FAERS Safety Report 6297387-4 (Version None)
Quarter: 2009Q3

REPORT INFORMATION
  Report Type: 
  Country: None (occurrence: None)
  Receive Date: 20090805
  Receipt Date: 20090724
  Transmission Date: 20100115
  Serious: Yes (Other)
  Sender: FDA-Public Use
  Company Number: PHHY2009FR26362

PATIENT
  Sex: Male

DRUGS (3)
  1. RITALIN [Suspect]
     Indication: PSYCHOMOTOR HYPERACTIVITY
     Dosage: 20 MG
     Dates: start: 20050401, end: 20070401
  2. RITALIN [Suspect]
     Dosage: 30 MG
     Dates: start: 20070901, end: 20090101
  3. RITALIN [Suspect]
     Dosage: 40 MG
     Dates: start: 20090201

REACTIONS (3)
  - SENSITIVITY OF TEETH [None]
  - TOOTH DISORDER [None]
  - TOOTH RESORPTION [None]
